FAERS Safety Report 10721633 (Version 2)
Quarter: 2015Q1

REPORT INFORMATION
  Report Type: Spontaneous
  Country: TR (occurrence: TR)
  Receive Date: 20150120
  Receipt Date: 20150305
  Transmission Date: 20150721
  Serious: Yes (Other)
  Sender: FDA-Public Use
  Company Number: TR-ROCHE-1523034

PATIENT
  Sex: Female

DRUGS (8)
  1. LUCENTIS [Suspect]
     Active Substance: RANIBIZUMAB
     Indication: PRODUCT USED FOR UNKNOWN INDICATION
     Route: 050
  2. AVASTIN [Suspect]
     Active Substance: BEVACIZUMAB
     Indication: PRODUCT USED FOR UNKNOWN INDICATION
     Route: 031
     Dates: start: 20120426
  3. LUCENTIS [Suspect]
     Active Substance: RANIBIZUMAB
     Dosage: RIGHT EYE
     Route: 050
     Dates: start: 20140711
  4. AVASTIN [Suspect]
     Active Substance: BEVACIZUMAB
     Dosage: RIGHT EYE
     Route: 031
     Dates: start: 20130412
  5. LUCENTIS [Suspect]
     Active Substance: RANIBIZUMAB
     Dosage: LEFT EYE
     Route: 050
     Dates: start: 20130102
  6. LUCENTIS [Suspect]
     Active Substance: RANIBIZUMAB
     Dosage: RIGHT EYE
     Route: 050
     Dates: start: 20121226
  7. LUCENTIS [Suspect]
     Active Substance: RANIBIZUMAB
     Dosage: LEFT EYE
     Route: 050
     Dates: start: 20130207
  8. LUCENTIS [Suspect]
     Active Substance: RANIBIZUMAB
     Dosage: RIGHT EYE
     Route: 050
     Dates: start: 20140417

REACTIONS (3)
  - Angioedema [Unknown]
  - Drug ineffective [Unknown]
  - Angioedema [Unknown]

NARRATIVE: CASE EVENT DATE: 20130207
